FAERS Safety Report 15203622 (Version 2)
Quarter: 2018Q3

REPORT INFORMATION
  Report Type: Spontaneous
  Country: CA (occurrence: CA)
  Receive Date: 20180726
  Receipt Date: 20180801
  Transmission Date: 20181010
  Serious: Yes (Other)
  Sender: FDA-Public Use
  Company Number: CA-ASTRAZENECA-2018SE93633

PATIENT
  Age: 48 Year
  Sex: Female

DRUGS (5)
  1. TAGRISSO [Suspect]
     Active Substance: OSIMERTINIB
     Indication: EGFR GENE MUTATION
     Dosage: EVERY DAY
     Route: 048
     Dates: start: 20171226
  2. LORAZEPAM. [Concomitant]
     Active Substance: LORAZEPAM
  3. TAGRISSO [Suspect]
     Active Substance: OSIMERTINIB
     Indication: LUNG NEOPLASM MALIGNANT
     Dosage: EVERY DAY
     Route: 048
     Dates: start: 20171226
  4. RIVAROXABAN [Concomitant]
     Active Substance: RIVAROXABAN
  5. FLUOROMETHOLONE. [Concomitant]
     Active Substance: FLUOROMETHOLONE

REACTIONS (2)
  - Cerebellar infarction [Unknown]
  - Cerebral infarction [Unknown]
